FAERS Safety Report 5930195-X (Version None)
Quarter: 2008Q4

REPORT INFORMATION
  Report Type: 
  Country: None (occurrence: None)
  Receive Date: 20081009
  Receipt Date: 20080312
  Transmission Date: 20090506
  Serious: Yes (Other)
  Sender: FDA-Public Use
  Company Number: PHEH2008US02702

PATIENT
  Age: 58 Year
  Sex: Female

DRUGS (9)
  1. ZOMETA [Suspect]
     Indication: BONE DISORDER
     Dosage: Q4WEEKS, INTRAVENOUS ;Q6WEEKS, INTRAVENOUS
     Route: 042
  2. SUTENT [Suspect]
     Indication: RENAL CELL CARCINOMA
     Dosage: 50 MG, QD ; 37.5 MG, QD
     Dates: start: 20070201
  3. NORVASC [Suspect]
     Indication: BLOOD PRESSURE
     Dosage: 5 MG, QD, ORAL
     Route: 048
     Dates: start: 20080219
  4. VALIUM [Concomitant]
  5. HERBAL PREPARATION (NO INGREDIENTS/SUBSTANCES) [Concomitant]
  6. ACETYLSALICYLIC ACID SRT [Concomitant]
  7. COENZYME Q10 [Concomitant]
  8. MINERALS NOS (MINERALS NOS) [Concomitant]
  9. VITAMINS NOS (VITAMINS NOS) [Concomitant]

REACTIONS (6)
  - BACK INJURY [None]
  - BLOOD CREATININE INCREASED [None]
  - DIARRHOEA [None]
  - HYPERTENSION [None]
  - NAUSEA [None]
  - VOMITING [None]
